FAERS Safety Report 24713949 (Version 1)
Quarter: 2024Q4

REPORT INFORMATION
  Report Type: Spontaneous
  Country: US (occurrence: US)
  Receive Date: 20241209
  Receipt Date: 20241209
  Transmission Date: 20250114
  Serious: No
  Sender: REGENERON
  Company Number: US-REGENERON PHARMACEUTICALS, INC.-2024-083800

PATIENT
  Sex: Female

DRUGS (3)
  1. EYLEA [Suspect]
     Active Substance: AFLIBERCEPT
     Indication: Macular degeneration
     Dosage: UNK, LEFT EYE, FORMULATION: UNKNOWN
     Route: 031
     Dates: start: 2022
  2. EYLEA [Suspect]
     Active Substance: AFLIBERCEPT
     Dosage: UNK, EVERY 6 WEEKS, LEFT EYE, FORMULATION: UNKNOWN
     Route: 031
  3. SYSTANE (HYPROMELLOSE 2910 (4000 MPA.S)) [Concomitant]
     Active Substance: HYPROMELLOSE 2910 (4000 MPA.S)
     Indication: Product used for unknown indication

REACTIONS (9)
  - Malaise [Unknown]
  - Eye disorder [Unknown]
  - Visual impairment [Unknown]
  - Laser therapy [Unknown]
  - Vision blurred [Unknown]
  - Eye pruritus [Not Recovered/Not Resolved]
  - Eye pain [Not Recovered/Not Resolved]
  - Intentional dose omission [Unknown]
  - Drug ineffective [Unknown]
